FAERS Safety Report 4724013-5 (Version None)
Quarter: 2005Q3

REPORT INFORMATION
  Report Type: 
  Country: None (occurrence: None)
  Receive Date: 20050722
  Receipt Date: 20050715
  Transmission Date: 20060218
  Serious: Yes (Death, Other)
  Sender: FDA-Public Use
  Company Number: 163-20785-04120002

PATIENT
  Age: 48 Year
  Sex: Male

DRUGS (1)
  1. THALOMID [Suspect]
     Indication: METASTATIC MALIGNANT MELANOMA
     Dosage: 50-200MG DAILY, ORAL
     Route: 048
     Dates: start: 20040929, end: 20040101

REACTIONS (4)
  - HEPATIC FAILURE [None]
  - MALIGNANT NEOPLASM PROGRESSION [None]
  - METASTASES TO LIVER [None]
  - METASTATIC MALIGNANT MELANOMA [None]
